FAERS Safety Report 5162500-9 (Version None)
Quarter: 2006Q4

REPORT INFORMATION
  Report Type: 
  Country: None (occurrence: None)
  Receive Date: 20061128
  Receipt Date: 20061128
  Transmission Date: 20070319
  Serious: Yes (Hospitalization)
  Sender: FDA-Public Use
  Company Number: None

PATIENT
  Sex: Female
  Weight: 58.0604 kg

DRUGS (18)
  1. TAXOTERE [Suspect]
     Indication: NON-SMALL CELL LUNG CANCER
     Dosage: 34MG (20MG/M2) WEEKLY IV
     Route: 042
     Dates: start: 20061005, end: 20061102
  2. CARBOPLATIN [Suspect]
     Indication: NON-SMALL CELL LUNG CANCER
     Dosage: 154 (AUC-2) WEEKLY IV
     Route: 042
     Dates: start: 20061012, end: 20061102
  3. RADIATION [Concomitant]
  4. ESTROGENS SOL/INJ [Concomitant]
  5. MONTELUKAST SODIUM [Concomitant]
  6. FAMOTIDINE [Concomitant]
  7. VITAMIN AND MINERAL PRENATAL SUPPLEMENT W/ FOLIC ACID CAP [Concomitant]
  8. METOCLOPRAMIDE [Concomitant]
  9. MORPHINE [Concomitant]
  10. SALMETEROL DISKUS INHALER [Concomitant]
  11. FLOVENT [Concomitant]
  12. ALBUTEROL [Concomitant]
  13. MILK OF MAGNESIA [Concomitant]
  14. ESOMEPRAZOLE MAGNESIUM [Concomitant]
  15. SENNA/DOCUSATE [Concomitant]
  16. MYLANTA/BENADRYL/V LIDOCAINE [Concomitant]
  17. SARNA ANTI-ITCH [Concomitant]
  18. MORPHINE IMMEDIATE RELEAS [Concomitant]

REACTIONS (12)
  - CONSTIPATION [None]
  - CULTURE URINE POSITIVE [None]
  - DEHYDRATION [None]
  - FEBRILE NEUTROPENIA [None]
  - HYPOKALAEMIA [None]
  - LABORATORY TEST INTERFERENCE [None]
  - MUCOSAL INFLAMMATION [None]
  - NAUSEA [None]
  - OEDEMA PERIPHERAL [None]
  - PYREXIA [None]
  - STAPHYLOCOCCAL INFECTION [None]
  - VOMITING [None]
